FAERS Safety Report 5173820-6 (Version None)
Quarter: 2006Q4

REPORT INFORMATION
  Report Type: 
  Country: None (occurrence: None)
  Receive Date: 20061214
  Receipt Date: 20061114
  Transmission Date: 20070319
  Serious: Yes (Disabling)
  Sender: FDA-Public Use
  Company Number: 2006JP004646

PATIENT
  Age: 9 Year
  Sex: Female
  Weight: 33 kg

DRUGS (7)
  1. CEFAMEZIN [Suspect]
     Indication: DRUG USE FOR UNKNOWN INDICATION
     Dosage: .5G PER DAY
     Route: 042
     Dates: start: 20061006, end: 20061006
  2. CEFOPERAZONE SODIUM [Suspect]
     Indication: DRUG USE FOR UNKNOWN INDICATION
     Route: 042
     Dates: start: 20061008, end: 20061008
  3. CONCURRENT MEDICATIONS [Concomitant]
  4. DORMICUM [Concomitant]
     Dates: start: 20061006, end: 20061031
  5. FENTANEST [Concomitant]
     Dates: start: 20061006, end: 20061031
  6. HANP [Concomitant]
     Dates: start: 20061006, end: 20061015
  7. GASTER [Concomitant]
     Dates: start: 20061006, end: 20061015

REACTIONS (5)
  - ACUTE RESPIRATORY DISTRESS SYNDROME [None]
  - C-REACTIVE PROTEIN INCREASED [None]
  - INTERSTITIAL LUNG DISEASE [None]
  - POST PROCEDURAL COMPLICATION [None]
  - PYREXIA [None]
